FAERS Safety Report 6975008-2 (Version None)
Quarter: 2010Q3

REPORT INFORMATION
  Report Type: 
  Country: None (occurrence: None)
  Receive Date: 20100910
  Receipt Date: 20090120
  Transmission Date: 20110219
  Serious: No
  Sender: FDA-Public Use
  Company Number: US-WYE-H07794209

PATIENT
  Sex: Male
  Weight: 93.07 kg

DRUGS (4)
  1. PRISTIQ [Suspect]
     Indication: DEPRESSION
     Route: 048
     Dates: start: 20090119
  2. EFAVIRENZ [Concomitant]
  3. EMTRICITABINE [Concomitant]
  4. CRESTOR [Concomitant]

REACTIONS (6)
  - ABDOMINAL DISCOMFORT [None]
  - DRY MOUTH [None]
  - ENERGY INCREASED [None]
  - FLUSHING [None]
  - INSOMNIA [None]
  - PARAESTHESIA [None]
